FAERS Safety Report 4682139-9 (Version None)
Quarter: 2005Q2

REPORT INFORMATION
  Report Type: 
  Country: None (occurrence: None)
  Receive Date: 20050603
  Receipt Date: 20050603
  Transmission Date: 20051028
  Serious: Yes (Life-Threatening, Hospitalization)
  Sender: FDA-Public Use
  Company Number: None

PATIENT
  Age: 88 Year
  Sex: Female

DRUGS (3)
  1. LOVENOX [Suspect]
     Dosage: 1MG 1KG X 1 DOSE
  2. AGGRASTAT [Suspect]
  3. PLETAL [Suspect]
     Dosage: 100 MG PO DAILY
     Route: 048

REACTIONS (3)
  - CREATININE RENAL CLEARANCE DECREASED [None]
  - HAEMATOCRIT DECREASED [None]
  - HYPOTENSION [None]
